FAERS Safety Report 5373235-1 (Version None)
Quarter: 2007Q2

REPORT INFORMATION
  Report Type: 
  Country: None (occurrence: None)
  Receive Date: 20070628
  Receipt Date: 20070622
  Transmission Date: 20071010
  Serious: Yes (Other)
  Sender: FDA-Public Use
  Company Number: PHEH2007US09181

PATIENT

DRUGS (1)
  1. ZOMETA [Suspect]

REACTIONS (3)
  - IMPAIRED HEALING [None]
  - OPEN REDUCTION OF FRACTURE [None]
  - STRESS FRACTURE [None]
